FAERS Safety Report 5381475-0 (Version None)
Quarter: 2007Q3

REPORT INFORMATION
  Report Type: 
  Country: None (occurrence: None)
  Receive Date: 20070705
  Receipt Date: 20070705
  Transmission Date: 20080115
  Serious: Yes (Other)
  Sender: FDA-Public Use
  Company Number: None

PATIENT
  Age: 68 Year
  Sex: Female
  Weight: 66.6788 kg

DRUGS (2)
  1. OXYCONTIN [Suspect]
     Indication: RADICULOPATHY
     Dosage: ONE PO Q 12 HOURS
     Route: 048
  2. OXYCONTIN [Suspect]
     Indication: RADICULOPATHY
     Dosage: ONE PO Q 12 HOURS
     Route: 048

REACTIONS (3)
  - DERMATITIS CONTACT [None]
  - FLUSHING [None]
  - HYPERSENSITIVITY [None]
